FAERS Safety Report 6812931-3 (Version None)
Quarter: 2010Q3

REPORT INFORMATION
  Report Type: 
  Country: None (occurrence: None)
  Receive Date: 20100701
  Receipt Date: 20100621
  Transmission Date: 20110219
  Serious: Yes (Disabling, Other)
  Sender: FDA-Public Use
  Company Number: GB-MYLANLABS-2010S1011104

PATIENT
  Age: 47 Year
  Sex: Male

DRUGS (5)
  1. VENLAFAXINE [Suspect]
     Indication: DEPRESSED MOOD
     Route: 048
     Dates: start: 20100409, end: 20100603
  2. ISPAGHULA HUSK /00029101/ [Concomitant]
     Indication: CONSTIPATION
     Route: 048
     Dates: start: 20100520
  3. LEVOTHYROXINE SODIUM [Concomitant]
     Indication: HYPOTHYROIDISM
     Route: 048
     Dates: start: 20100409
  4. MIRTAZAPINE [Concomitant]
     Indication: DEPRESSED MOOD
     Route: 048
     Dates: start: 20100409
  5. OLANZAPINE [Concomitant]
     Indication: INSOMNIA
     Route: 048
     Dates: start: 20100409

REACTIONS (3)
  - DEPRESSED MOOD [None]
  - DRUG INEFFECTIVE [None]
  - MEDICATION RESIDUE [None]
